FAERS Safety Report 10728289 (Version 1)
Quarter: 2015Q1

REPORT INFORMATION
  Report Type: Spontaneous
  Country: MY (occurrence: MY)
  Receive Date: 20150121
  Receipt Date: 20150121
  Transmission Date: 20150721
  Serious: Yes (Death, Other)
  Sender: FDA-Public Use
  Company Number: PHHY2015MY005812

PATIENT
  Age: 58 Year
  Sex: Male

DRUGS (6)
  1. FRESH FROZEN PLASMA [Concomitant]
     Active Substance: HUMAN PLASMA
     Indication: ANTICOAGULANT THERAPY
     Dosage: 4 U, UNK
     Route: 065
  2. TRANEXAMIC [Concomitant]
     Indication: MEDIASTINAL HAEMORRHAGE
     Route: 065
  3. HEPARIN [Suspect]
     Active Substance: HEPARIN SODIUM
     Dosage: 60000 IU, (8.5 MG/KG)
     Route: 065
  4. CRYOPRECIPITATE [Concomitant]
     Active Substance: ANTIHEMOPHILIC FACTOR HUMAN\FIBRINOGEN HUMAN\FACTOR XIII CONCENTRATE (HUMAN)\VON WILLEBRAND FACTOR HUMAN
     Indication: DISSEMINATED INTRAVASCULAR COAGULATION
     Dosage: 6 U, UNK
     Route: 065
  5. HEPARIN [Suspect]
     Active Substance: HEPARIN SODIUM
     Indication: ANTICOAGULANT THERAPY
     Dosage: 40 MG, UNK
     Route: 058
  6. PLATELETS [Concomitant]
     Active Substance: HUMAN PLATELET, ALLOGENIC
     Indication: DISSEMINATED INTRAVASCULAR COAGULATION
     Dosage: 4 U, UNK
     Route: 065

REACTIONS (2)
  - Death [Fatal]
  - Heparin resistance [Unknown]
